FAERS Safety Report 22945215 (Version 3)
Quarter: 2023Q4

REPORT INFORMATION
  Report Type: Spontaneous
  Country: US (occurrence: US)
  Receive Date: 20230914
  Receipt Date: 20231121
  Transmission Date: 20240110
  Serious: Yes (Hospitalization)
  Sender: FDA-Public Use
  Company Number: US-BoehringerIngelheim-2023-BI-261274

PATIENT
  Age: 70 Year
  Sex: Male

DRUGS (11)
  1. JARDIANCE [Suspect]
     Active Substance: EMPAGLIFLOZIN
     Indication: Product used for unknown indication
     Route: 048
     Dates: start: 20210901
  2. bumetanide (bumetanide 1 mg oral tablet) [Concomitant]
     Indication: Product used for unknown indication
     Route: 048
  3. CARVEDILOL (COREG 6.25 mg oral tablet) [Concomitant]
     Indication: Product used for unknown indication
     Route: 048
  4. SACUBITRIL-VALSARTAN (ENTRESTO 24 mg-26mg oral tablet) [Concomitant]
     Indication: Product used for unknown indication
     Dosage: 24MG-26MG
     Route: 048
  5. AMIODARONE (AMIODARONE 200 mg oral tablet) [Concomitant]
     Indication: Product used for unknown indication
     Route: 048
  6. APIXABAN (ELIQUIS 5 mg oral tablet) [Concomitant]
     Indication: Product used for unknown indication
     Route: 048
  7. ASPIRIN (ASPIRIN enteric coated) [Concomitant]
     Indication: Product used for unknown indication
     Dosage: FOA- ENTERIC COATED; AT BEDTIME
     Route: 048
  8. ATORVASTATIN (ATORVASTATIN 20 mg oral tablet) [Concomitant]
     Indication: Product used for unknown indication
     Route: 048
  9. CLOTIMAZOLE-BETAMETHASONE DIPROPIONATE TOPICAL [Concomitant]
     Indication: Hand dermatitis
     Dosage: (1% - 0.05% TOPICAL CREAM)
  10. LEVOTHYROXINE [Concomitant]
     Active Substance: LEVOTHYROXINE
     Indication: Product used for unknown indication
     Dosage: IN THE MORNING
     Route: 048
  11. POTASIUM CHLORIDE (POTASIUM CHLORIDE 10mEq oral cap, extended release) [Concomitant]
     Indication: Product used for unknown indication
     Route: 048

REACTIONS (1)
  - Atrial fibrillation [Unknown]

NARRATIVE: CASE EVENT DATE: 20230829
